FAERS Safety Report 17062871 (Version 1)
Quarter: 2019Q4

REPORT INFORMATION
  Report Type: Spontaneous
  Country: US (occurrence: US)
  Receive Date: 20191023
  Receipt Date: 20191023
  Transmission Date: 20200122
  Serious: Yes (Disabling)
  Sender: FDA-Public Use
  Company Number: None

PATIENT
  Age: 68 Year
  Sex: Male
  Weight: 70.31 kg

DRUGS (1)
  1. SIMVASTATIN 20MG [Suspect]
     Active Substance: SIMVASTATIN
     Indication: BLOOD CHOLESTEROL
     Route: 048
     Dates: start: 2010, end: 2018

REACTIONS (1)
  - Blindness unilateral [None]

NARRATIVE: CASE EVENT DATE: 20190817
